FAERS Safety Report 23756987 (Version 1)
Quarter: 2024Q2

REPORT INFORMATION
  Report Type: Spontaneous
  Country: US (occurrence: US)
  Receive Date: 20240418
  Receipt Date: 20240418
  Transmission Date: 20240716
  Serious: No
  Sender: FDA-Public Use
  Company Number: US-MYLANLABS-2024M1033756

PATIENT
  Sex: Female

DRUGS (1)
  1. XANAX [Suspect]
     Active Substance: ALPRAZOLAM
     Indication: Sleep disorder
     Dosage: 0.5 MILLIGRAM (TAKE 1 TABLET BY MOUTH NIGHTLY AS NEEDED FOR SLEEP)
     Route: 048

REACTIONS (1)
  - Off label use [Unknown]
